FAERS Safety Report 6720300-X (Version None)
Quarter: 2010Q2

REPORT INFORMATION
  Report Type: 
  Country: None (occurrence: None)
  Receive Date: 20100511
  Receipt Date: 20100503
  Transmission Date: 20101027
  Serious: Yes (Death, Hospitalization, Other)
  Sender: FDA-Public Use
  Company Number: US-BAXTER-2010BH012308

PATIENT
  Age: 60 Year
  Sex: Male

DRUGS (2)
  1. DIANEAL [Suspect]
     Indication: PERITONEAL DIALYSIS
     Route: 033
  2. DIANEAL [Suspect]
     Indication: RENAL FAILURE CHRONIC
     Route: 033

REACTIONS (5)
  - CARDIAC ARREST [None]
  - FATIGUE [None]
  - HAEMOGLOBIN DECREASED [None]
  - MENINGITIS ASEPTIC [None]
  - SEPSIS [None]
